FAERS Safety Report 5736512-8 (Version None)
Quarter: 2008Q2

REPORT INFORMATION
  Report Type: 
  Country: None (occurrence: None)
  Receive Date: 20080513
  Receipt Date: 20080512
  Transmission Date: 20081010
  Serious: Yes (Life-Threatening, Other)
  Sender: FDA-Public Use
  Company Number: IE-BRISTOL-MYERS SQUIBB COMPANY-13831599

PATIENT
  Age: 47 Year
  Sex: Male
  Weight: 82 kg

DRUGS (10)
  1. REYATAZ [Suspect]
     Indication: HIV INFECTION
     Route: 048
  2. DIAZEPAM [Suspect]
     Indication: DRUG DEPENDENCE
     Route: 048
  3. METHADONE HCL [Suspect]
     Indication: DRUG DEPENDENCE
     Route: 048
  4. TRUVADA [Suspect]
     Indication: HIV INFECTION
     Dosage: TENOFOVIR (DISOPROXIL 245MG/EMTRICITABINE 200MG)1TAB DAILY PRE 2006
  5. RITONAVIR [Suspect]
     Indication: HIV INFECTION
     Dosage: PRE 2006
     Route: 048
  6. NITRAZEPAM [Suspect]
  7. DALMANE [Concomitant]
     Dosage: PRE-2006
     Route: 048
  8. AUGMENTIN '125' [Concomitant]
     Indication: PNEUMONIA ASPIRATION
     Dates: start: 20070620, end: 20070622
  9. METRONIDAZOLE HCL [Concomitant]
     Indication: PNEUMONIA ASPIRATION
     Dates: start: 20070614, end: 20070622
  10. TAZOCIN [Concomitant]
     Indication: PNEUMONIA ASPIRATION
     Dates: start: 20070613, end: 20070620

REACTIONS (6)
  - CARDIAC ARREST [None]
  - ELECTROCARDIOGRAM QT PROLONGED [None]
  - FALL [None]
  - HUMERUS FRACTURE [None]
  - PNEUMONIA ASPIRATION [None]
  - VENTRICULAR TACHYCARDIA [None]
